FAERS Safety Report 12394431 (Version 1)
Quarter: 2016Q2

REPORT INFORMATION
  Report Type: Spontaneous
  Country: US (occurrence: US)
  Receive Date: 20160523
  Receipt Date: 20160523
  Transmission Date: 20160815
  Serious: No
  Sender: FDA-Public Use
  Company Number: US-TARO-2015TAR01036

PATIENT
  Age: 1 Year
  Sex: Male
  Weight: 15.87 kg

DRUGS (1)
  1. CHILDRENS CETIRIZINE HYDROCHLORIDE SUGAR FREE GRAPE [Suspect]
     Active Substance: CETIRIZINE HYDROCHLORIDE
     Indication: HYPERSENSITIVITY
     Dosage: 2 ML, ONCE
     Route: 048
     Dates: start: 20151022, end: 20151022

REACTIONS (6)
  - Erythema [Recovered/Resolved]
  - Screaming [Recovered/Resolved]
  - Skin odour abnormal [Recovered/Resolved]
  - Product quality issue [Not Recovered/Not Resolved]
  - Diarrhoea [Recovered/Resolved]
  - Intentional underdose [Recovered/Resolved]

NARRATIVE: CASE EVENT DATE: 20151022
